FAERS Safety Report 25353841 (Version 1)
Quarter: 2025Q2

REPORT INFORMATION
  Report Type: Spontaneous
  Country: US (occurrence: US)
  Receive Date: 20250523
  Receipt Date: 20250523
  Transmission Date: 20250717
  Serious: Yes (Hospitalization)
  Sender: ELI LILLY AND COMPANY
  Company Number: US-ELI_LILLY_AND_COMPANY-US202505012334

PATIENT
  Age: 66 Year
  Sex: Male

DRUGS (1)
  1. ZEPBOUND [Suspect]
     Active Substance: TIRZEPATIDE
     Indication: Product used for unknown indication
     Route: 065

REACTIONS (8)
  - Epicondylitis [Unknown]
  - Tendon rupture [Unknown]
  - Back injury [Unknown]
  - Road traffic accident [Unknown]
  - Neck injury [Unknown]
  - Gastrooesophageal reflux disease [Unknown]
  - Injection site coldness [Unknown]
  - Injection site mass [Recovered/Resolved]
